FAERS Safety Report 4565200-9 (Version None)
Quarter: 2005Q1

REPORT INFORMATION
  Report Type: 
  Country: None (occurrence: None)
  Receive Date: 20050127
  Receipt Date: 20050127
  Transmission Date: 20050727
  Serious: Yes (Disabling, Other)
  Sender: FDA-Public Use
  Company Number: None

PATIENT
  Age: 55 Year
  Sex: Female
  Weight: 61.6892 kg

DRUGS (11)
  1. CYMBALTA [Suspect]
     Indication: BACK PAIN
     Dosage: 30 MG QD
     Dates: start: 20040918, end: 20050103
  2. CYMBALTA [Suspect]
     Indication: DEPRESSION
     Dosage: 30 MG QD
     Dates: start: 20040918, end: 20050103
  3. INTAL [Concomitant]
  4. ATROVENT [Concomitant]
  5. VENTOLIN [Concomitant]
  6. SYNTHROID [Concomitant]
  7. VAG ESTROGEN [Concomitant]
  8. HYDROCODONE [Concomitant]
  9. VALIUM [Concomitant]
  10. ASTYLIN [Concomitant]
  11. NITRO [Concomitant]

REACTIONS (8)
  - ACROCHORDON [None]
  - ANGINA PECTORIS [None]
  - BALANCE DISORDER [None]
  - DISTURBANCE IN ATTENTION [None]
  - FALL [None]
  - HEADACHE [None]
  - INJURY [None]
  - MEMORY IMPAIRMENT [None]
